FAERS Safety Report 23256288 (Version 1)
Quarter: 2023Q4

REPORT INFORMATION
  Report Type: Spontaneous
  Country: US (occurrence: US)
  Receive Date: 20231204
  Receipt Date: 20231204
  Transmission Date: 20240109
  Serious: No
  Sender: FDA-Public Use
  Company Number: US-AUROBINDO-AUR-APL-2023-055165

PATIENT
  Age: 79 Year
  Sex: Male
  Weight: 99.8 kg

DRUGS (1)
  1. DORZOLAMIDE HYDROCHLORIDE\TIMOLOL MALEATE [Suspect]
     Active Substance: DORZOLAMIDE HYDROCHLORIDE\TIMOLOL MALEATE
     Indication: Glaucoma
     Dosage: 1 DROP, TWO TIMES A DAY (RIGHT EYE)
     Route: 065

REACTIONS (1)
  - Product dose omission issue [Unknown]
